FAERS Safety Report 5081891-0 (Version None)
Quarter: 2006Q3

REPORT INFORMATION
  Report Type: 
  Country: None (occurrence: None)
  Receive Date: 20060816
  Receipt Date: 20060131
  Transmission Date: 20061208
  Serious: Yes (Hospitalization)
  Sender: FDA-Public Use
  Company Number: US-ROCHE-434399

PATIENT
  Age: 57 Year
  Sex: Female

DRUGS (5)
  1. PEGASYS [Suspect]
     Route: 058
     Dates: start: 20060130
  2. PEGASYS [Suspect]
     Dosage: DOSE REDUCED.
     Route: 058
     Dates: start: 20060724
  3. RIBASPHERE [Suspect]
     Route: 048
     Dates: start: 20060130
  4. RIBASPHERE [Suspect]
     Dosage: DECREASED DOSAGE FOLLOWING HOSPITALISATION.
     Route: 048
  5. COUMADIN [Concomitant]

REACTIONS (15)
  - ANOREXIA [None]
  - COAGULOPATHY [None]
  - DEPRESSION [None]
  - DIARRHOEA [None]
  - FATIGUE [None]
  - HAEMORRHOIDS [None]
  - HEADACHE [None]
  - HYPERHIDROSIS [None]
  - IMMUNOSUPPRESSION [None]
  - INJECTION SITE URTICARIA [None]
  - NAUSEA [None]
  - PHARYNGOLARYNGEAL PAIN [None]
  - RED BLOOD CELL COUNT DECREASED [None]
  - WEIGHT DECREASED [None]
  - WHITE BLOOD CELL COUNT DECREASED [None]
